FAERS Safety Report 6661794-8 (Version None)
Quarter: 2010Q1

REPORT INFORMATION
  Report Type: 
  Country: None (occurrence: None)
  Receive Date: 20100331
  Receipt Date: 20090707
  Transmission Date: 20100710
  Serious: No
  Sender: FDA-Public Use
  Company Number: US-BRISTOL-MYERS SQUIBB COMPANY-14682512

PATIENT
  Age: 89 Year
  Sex: Female

DRUGS (3)
  1. ERBITUX [Suspect]
     Indication: SQUAMOUS CELL CARCINOMA
     Dosage: LOT # 08C00179;LAST DOSE ON 12JUN09
     Route: 042
     Dates: start: 20081219
  2. FLUOROURACIL [Suspect]
     Indication: SQUAMOUS CELL CARCINOMA
  3. FLUOROURACIL [Suspect]
     Indication: SQUAMOUS CELL CARCINOMA

REACTIONS (1)
  - HYPOMAGNESAEMIA [None]
